FAERS Safety Report 21121480 (Version 1)
Quarter: 2022Q3

REPORT INFORMATION
  Report Type: Spontaneous
  Country: US (occurrence: US)
  Receive Date: 20220722
  Receipt Date: 20220722
  Transmission Date: 20221027
  Serious: Yes (Hospitalization, Other)
  Sender: FDA-Public Use
  Company Number: US-BRISTOL-MYERS SQUIBB COMPANY-2022-073882

PATIENT
  Age: 73 Year
  Sex: Male
  Weight: 73.66 kg

DRUGS (1)
  1. REVLIMID [Suspect]
     Active Substance: LENALIDOMIDE
     Indication: Plasma cell myeloma
     Dosage: DOSE : 10 MG;     FREQ : 14 DAYS ON AND OFF FOR 7 DAYS
     Route: 048
     Dates: end: 20220706

REACTIONS (2)
  - Myopathy [Unknown]
  - Off label use [Unknown]
